FAERS Safety Report 10495937 (Version 1)
Quarter: 2014Q4

REPORT INFORMATION
  Report Type: Spontaneous
  Country: US (occurrence: US)
  Receive Date: 20141003
  Receipt Date: 20141003
  Transmission Date: 20150528
  Serious: Yes (Congenital Anomaly, Other)
  Sender: FDA-Public Use
  Company Number: US-TEVA-512385USA

PATIENT
  Sex: Female

DRUGS (1)
  1. ETODOLAC. [Suspect]
     Active Substance: ETODOLAC

REACTIONS (1)
  - Coeliac disease [Unknown]
